FAERS Safety Report 19621457 (Version 1)
Quarter: 2021Q3

REPORT INFORMATION
  Report Type: Spontaneous
  Country: GB (occurrence: GB)
  Receive Date: 20210728
  Receipt Date: 20210728
  Transmission Date: 20211014
  Serious: Yes (Other)
  Sender: FDA-Public Use
  Company Number: GB-TEVA-2021-GB-1935524

PATIENT
  Age: 55 Year
  Sex: Female

DRUGS (5)
  1. NAPROXEN. [Suspect]
     Active Substance: NAPROXEN
     Indication: ARTHRITIS
     Dosage: 1000 MILLIGRAM DAILY;
     Route: 048
     Dates: start: 20210602, end: 20210611
  2. VENTOLIN [Concomitant]
     Active Substance: ALBUTEROL SULFATE
     Indication: ILL-DEFINED DISORDER
  3. OMEPRAZOLE. [Concomitant]
     Active Substance: OMEPRAZOLE
     Indication: ILL-DEFINED DISORDER
  4. OESTROGEL [Concomitant]
     Active Substance: ESTRADIOL
  5. NAPROXEN. [Suspect]
     Active Substance: NAPROXEN
     Indication: ABDOMINAL PAIN

REACTIONS (4)
  - Dizziness [Recovered/Resolved with Sequelae]
  - Vision blurred [Recovered/Resolved with Sequelae]
  - Disorientation [Recovered/Resolved with Sequelae]
  - Headache [Recovered/Resolved with Sequelae]

NARRATIVE: CASE EVENT DATE: 20210607
